FAERS Safety Report 16062795 (Version 1)
Quarter: 2019Q1

REPORT INFORMATION
  Report Type: Report from Study
  Country: None (occurrence: CA)
  Receive Date: 20190312
  Receipt Date: 20190312
  Transmission Date: 20190418
  Serious: Yes (Hospitalization)
  Sender: FDA-Public Use
  Company Number: CA-ABBVIE-19S-028-2699555-00

PATIENT
  Age: 62 Year
  Sex: Male

DRUGS (2)
  1. DEXTROMETHORPHAN [Suspect]
     Active Substance: DEXTROMETHORPHAN
     Indication: PRODUCT USED FOR UNKNOWN INDICATION
     Route: 065
  2. LUPRON DEPOT [Suspect]
     Active Substance: LEUPROLIDE ACETATE
     Indication: PRODUCT USED FOR UNKNOWN INDICATION
     Route: 030
     Dates: start: 20100628

REACTIONS (8)
  - Swelling face [Unknown]
  - Diarrhoea [Unknown]
  - Vomiting [Unknown]
  - Asthenia [Unknown]
  - Nausea [Unknown]
  - Peripheral swelling [Unknown]
  - Eye swelling [Unknown]
  - Dehydration [Unknown]

NARRATIVE: CASE EVENT DATE: 201901
